FAERS Safety Report 9476242 (Version 1)
Quarter: 2013Q3

REPORT INFORMATION
  Report Type: Spontaneous
  Country: AU (occurrence: AU)
  Receive Date: 20130826
  Receipt Date: 20130826
  Transmission Date: 20140515
  Serious: No
  Sender: FDA-Public Use
  Company Number: AU-JNJFOC-20130808095

PATIENT
  Sex: Female
  Weight: 80 kg

DRUGS (4)
  1. DUROGESIC [Suspect]
     Indication: PAIN
     Route: 062
  2. DUROGESIC [Suspect]
     Indication: PAIN
     Dosage: LOWER STRENGTH
     Route: 062
  3. DUROGESIC [Suspect]
     Indication: BREAST CANCER
     Route: 062
  4. DUROGESIC [Suspect]
     Indication: BREAST CANCER
     Dosage: LOWER STRENGTH
     Route: 062

REACTIONS (4)
  - Wrong technique in drug usage process [Unknown]
  - Drug effect decreased [Recovered/Resolved with Sequelae]
  - Product quality issue [Recovered/Resolved with Sequelae]
  - Hyperhidrosis [Unknown]
